FAERS Safety Report 6934240-4 (Version None)
Quarter: 2010Q3

REPORT INFORMATION
  Report Type: 
  Country: None (occurrence: None)
  Receive Date: 20100820
  Receipt Date: 20100812
  Transmission Date: 20110219
  Serious: Yes (Other)
  Sender: FDA-Public Use
  Company Number: US-PFIZER INC-2010102073

PATIENT
  Sex: Female

DRUGS (1)
  1. CELEBREX [Suspect]

REACTIONS (4)
  - DISTURBANCE IN ATTENTION [None]
  - HOT FLUSH [None]
  - HYPOAESTHESIA [None]
  - TREMOR [None]
